FAERS Safety Report 7632271-2 (Version None)
Quarter: 2011Q3

REPORT INFORMATION
  Report Type: 
  Country: None (occurrence: None)
  Receive Date: 20110725
  Receipt Date: 20100712
  Transmission Date: 20111222
  Serious: No
  Sender: FDA-Public Use
  Company Number: US-BRISTOL-MYERS SQUIBB COMPANY-15188147

PATIENT
  Age: 55 Year
  Sex: Male

DRUGS (9)
  1. COUMADIN [Suspect]
     Indication: THROMBOSIS
     Dosage: DOSE = 1 ANA A HALF MONTH
  2. METFORMIN HCL [Concomitant]
  3. LISINOPRIL [Concomitant]
     Indication: BLOOD PRESSURE
  4. AMLODIPINE [Concomitant]
  5. RANITIDINE [Concomitant]
  6. CARVEDILOL [Concomitant]
  7. HUMULIN 70/30 [Concomitant]
  8. SIMVASTATIN [Concomitant]
  9. FUROSEMIDE [Concomitant]

REACTIONS (3)
  - DIZZINESS [None]
  - OEDEMA PERIPHERAL [None]
  - HEADACHE [None]
